FAERS Safety Report 7715680-2 (Version None)
Quarter: 2011Q3

REPORT INFORMATION
  Report Type: 
  Country: None (occurrence: None)
  Receive Date: 20110829
  Receipt Date: 20110823
  Transmission Date: 20111222
  Serious: Yes (Other)
  Sender: FDA-Public Use
  Company Number: ES-PFIZER INC-2011195830

PATIENT
  Age: 78 Year
  Sex: Male

DRUGS (7)
  1. ZYVOX [Suspect]
     Indication: PNEUMONIA
     Dosage: 0.6 G, 2X/DAY
     Route: 042
     Dates: start: 20110223, end: 20110227
  2. LEVOFLOXACIN [Suspect]
     Indication: PNEUMONIA
     Dosage: 166.66 MG, 3X/DAY
     Route: 042
     Dates: start: 20110222, end: 20110227
  3. VENTOLIN HFA [Suspect]
     Indication: RESPIRATORY FAILURE
     Dosage: 6 MG, 1X/DAY
     Route: 042
     Dates: start: 20110223, end: 20110227
  4. ESOMEPRAZOLE SODIUM [Suspect]
     Indication: PROPHYLAXIS AGAINST GASTROINTESTINAL ULCER
     Dosage: 20 MG, 1X/DAY
     Route: 042
     Dates: start: 20110210, end: 20110227
  5. PIPERACILLIN SODIUM [Suspect]
     Indication: PNEUMONIA
     Dosage: 4 G, 3X/DAY
     Route: 042
     Dates: start: 20110223, end: 20110225
  6. FUROSEMIDE [Suspect]
     Dosage: 20 MG, 3X/DAY
     Route: 042
     Dates: start: 20110210, end: 20110227
  7. TAZOBACTAM [Suspect]
     Indication: PNEUMONIA
     Dosage: UNK
     Route: 042
     Dates: start: 20110223, end: 20110225

REACTIONS (1)
  - HYPOKALAEMIA [None]
